FAERS Safety Report 6040029-3 (Version None)
Quarter: 2009Q1

REPORT INFORMATION
  Report Type: 
  Country: None (occurrence: None)
  Receive Date: 20090116
  Receipt Date: 20071120
  Transmission Date: 20090719
  Serious: Yes (Hospitalization)
  Sender: FDA-Public Use
  Company Number: US-BRISTOL-MYERS SQUIBB COMPANY-13989256

PATIENT
  Age: 28 Year
  Sex: Female

DRUGS (3)
  1. ABILIFY [Suspect]
     Indication: DEPRESSION
     Dosage: STARTED AT 10 MG, INCREASED TO 15MG ON 23OCT07
     Route: 048
  2. LUPRON DEPOT [Suspect]
     Indication: PELVIC PAIN
     Route: 030
     Dates: start: 20071005
  3. CLONIDINE [Concomitant]
     Indication: ATTENTION DEFICIT/HYPERACTIVITY DISORDER

REACTIONS (1)
  - SUICIDAL IDEATION [None]
